FAERS Safety Report 21218743 (Version 1)
Quarter: 2022Q3

REPORT INFORMATION
  Report Type: Spontaneous
  Country: US (occurrence: None)
  Receive Date: 20220816
  Receipt Date: 20220816
  Transmission Date: 20221027
  Serious: Yes (Other)
  Sender: FDA-Public Use
  Company Number: None

PATIENT
  Age: 25 Year
  Sex: Male
  Weight: 81 kg

DRUGS (1)
  1. COSMETICS [Suspect]
     Active Substance: COSMETICS
     Indication: Melanocytic naevus
     Dosage: FREQUENCY : ONCE;?
     Route: 003
     Dates: start: 20220710, end: 20220711

REACTIONS (2)
  - Application site scar [None]
  - Application site ulcer [None]

NARRATIVE: CASE EVENT DATE: 20220714
